FAERS Safety Report 6381706-4 (Version None)
Quarter: 2009Q3

REPORT INFORMATION
  Report Type: 
  Country: None (occurrence: None)
  Receive Date: 20090930
  Receipt Date: 20090918
  Transmission Date: 20100115
  Serious: Yes (Other)
  Sender: FDA-Public Use
  Company Number: PHHY2009DE40573

PATIENT
  Sex: Male

DRUGS (4)
  1. RASILEZ [Suspect]
     Indication: HYPERTENSION
     Dosage: 150 MG/DAY
     Route: 048
     Dates: start: 20081201, end: 20090101
  2. RASILEZ [Suspect]
     Dosage: 150 MG/DAY
     Route: 048
     Dates: start: 20090701
  3. NEBIVOLOL [Concomitant]
     Dosage: UNK
     Dates: start: 20090101
  4. THIAZIDES [Concomitant]
     Dosage: UNK
     Dates: start: 20090101

REACTIONS (5)
  - CHEST DISCOMFORT [None]
  - FIBROMYALGIA [None]
  - MYALGIA [None]
  - PAIN [None]
  - TENDON DISORDER [None]
